FAERS Safety Report 6361945-9 (Version None)
Quarter: 2009Q3

REPORT INFORMATION
  Report Type: 
  Country: None (occurrence: None)
  Receive Date: 20090918
  Receipt Date: 20090916
  Transmission Date: 20100115
  Serious: No
  Sender: FDA-Public Use
  Company Number: B0593511A

PATIENT

DRUGS (1)
  1. RELENZA [Suspect]
     Indication: DRUG EXPOSURE VIA BREAST MILK

REACTIONS (1)
  - DRUG EXPOSURE VIA BREAST MILK [None]
